FAERS Safety Report 23383919 (Version 7)
Quarter: 2025Q3

REPORT INFORMATION
  Report Type: Spontaneous
  Country: US (occurrence: US)
  Receive Date: 20240109
  Receipt Date: 20250814
  Transmission Date: 20251021
  Serious: Yes (Other)
  Sender: PFIZER
  Company Number: US-PFIZER INC-202400006192

PATIENT
  Age: 58 Year
  Sex: Female
  Weight: 83.91 kg

DRUGS (3)
  1. XELJANZ [Suspect]
     Active Substance: TOFACITINIB CITRATE
     Indication: Arthritis
     Dosage: 10 MG, 1X/DAY IN THE MORNING
     Route: 048
     Dates: start: 2021, end: 20231230
  2. XELJANZ [Suspect]
     Active Substance: TOFACITINIB CITRATE
     Indication: Rheumatoid arthritis
     Route: 048
     Dates: start: 20240317
  3. XELJANZ [Suspect]
     Active Substance: TOFACITINIB CITRATE
     Indication: Osteoarthritis
     Dosage: 10 MG, 2X/DAY
     Route: 048

REACTIONS (8)
  - Spinal fracture [Unknown]
  - Body height decreased [Unknown]
  - Weight decreased [Unknown]
  - Dysgraphia [Unknown]
  - Finger deformity [Unknown]
  - Hand deformity [Unknown]
  - Product dose omission issue [Unknown]
  - Off label use [Unknown]

NARRATIVE: CASE EVENT DATE: 20210101
